FAERS Safety Report 7951865-8 (Version None)
Quarter: 2011Q4

REPORT INFORMATION
  Report Type: 
  Country: None (occurrence: None)
  Receive Date: 20111201
  Receipt Date: 20111201
  Transmission Date: 20120403
  Serious: Yes (Hospitalization)
  Sender: FDA-Public Use
  Company Number: None

PATIENT
  Age: 53 Year
  Sex: Male
  Weight: 64.863 kg

DRUGS (2)
  1. NEURONTIN [Concomitant]
     Route: 048
  2. EPTIFIBATIDE [Suspect]
     Indication: PERCUTANEOUS CORONARY INTERVENTION
     Dosage: 2 MCG/KG/MIN
     Route: 041
     Dates: start: 20110910, end: 20110911

REACTIONS (2)
  - LEFT VENTRICULAR HYPERTROPHY [None]
  - THROMBOCYTOPENIA [None]
